FAERS Safety Report 11341957 (Version 1)
Quarter: 2015Q3

REPORT INFORMATION
  Report Type: Report from Study
  Country: FR (occurrence: FR)
  Receive Date: 20150805
  Receipt Date: 20150805
  Transmission Date: 20151125
  Serious: Yes (Hospitalization, Other)
  Sender: FDA-Public Use
  Company Number: FR-ABBVIE-15P-056-1423109-00

PATIENT
  Age: 71 Year
  Sex: Female
  Weight: 55 kg

DRUGS (1)
  1. DUODOPA [Suspect]
     Active Substance: CARBIDOPA\LEVODOPA
     Indication: PARKINSON^S DISEASE
     Dosage: MORNING DOSE 13ML; EXTRA DOSE 4ML; CONTINUOUS FLOW RATE DURING THE DAY 4ML/H
     Route: 065

REACTIONS (3)
  - Abdominal wall abscess [Not Recovered/Not Resolved]
  - Gastric fistula [Unknown]
  - Impaired healing [Unknown]

NARRATIVE: CASE EVENT DATE: 20150624
